FAERS Safety Report 20704190 (Version 1)
Quarter: 2022Q2

REPORT INFORMATION
  Report Type: Spontaneous
  Country: US (occurrence: US)
  Receive Date: 20220413
  Receipt Date: 20220413
  Transmission Date: 20220721
  Serious: Yes (Hospitalization, Other)
  Sender: FDA-Public Use
  Company Number: US-MLMSERVICE-20220329-3459172-1

PATIENT
  Age: 24 Year
  Sex: Female

DRUGS (1)
  1. DESOGESTREL AND ETHINYL ESTRADIOL [Suspect]
     Active Substance: DESOGESTREL\ETHINYL ESTRADIOL
     Indication: Dysmenorrhoea
     Dosage: UNK, DESOGESTREL (PROGESTIN), 0.15 MG, AND ETHINYL ESTRADIOL (ESTROGEN), 0.03 MG
     Route: 048

REACTIONS (2)
  - Thrombophlebitis [Recovering/Resolving]
  - Mesenteric vein thrombosis [Recovering/Resolving]
